FAERS Safety Report 8079742-5 (Version None)
Quarter: 2012Q1

REPORT INFORMATION
  Report Type: 
  Country: None (occurrence: None)
  Receive Date: 20120128
  Receipt Date: 20110719
  Transmission Date: 20120608
  Serious: No
  Sender: FDA-Public Use
  Company Number: US-ABBOTT-11P-163-0840357-00

PATIENT
  Age: 58 Year
  Sex: Female

DRUGS (12)
  1. PROTONIX [Concomitant]
     Indication: GASTROOESOPHAGEAL REFLUX DISEASE
  2. PREVACID [Concomitant]
     Indication: GASTROOESOPHAGEAL REFLUX DISEASE
  3. BONIVA [Concomitant]
     Indication: PRODUCT USED FOR UNKNOWN INDICATION
  4. FLONASE [Concomitant]
     Indication: HYPERSENSITIVITY
     Route: 045
  5. PREVACID [Concomitant]
     Indication: GASTRIC PH DECREASED
  6. LISINOPRIL [Concomitant]
     Indication: HYPERTENSION
  7. VALIUM [Concomitant]
     Indication: ANXIETY
  8. CITRICAL [Concomitant]
     Indication: VITAMIN SUPPLEMENTATION
  9. HUMIRA [Suspect]
     Indication: PSORIATIC ARTHROPATHY
     Dates: start: 20110622
  10. CLOBETASOL [Concomitant]
     Indication: SKIN DISORDER
     Dosage: FOAM; AS NEEDED
  11. WELLBUTRIN XL [Concomitant]
     Indication: DEPRESSION
  12. WELLBUTRIN XL [Concomitant]
     Indication: ANXIETY

REACTIONS (1)
  - INJECTION SITE PAIN [None]
